FAERS Safety Report 7452523-9 (Version None)
Quarter: 2011Q2

REPORT INFORMATION
  Report Type: 
  Country: None (occurrence: None)
  Receive Date: 20110502
  Receipt Date: 20101008
  Transmission Date: 20111010
  Serious: No
  Sender: FDA-Public Use
  Company Number: US-ASTRAZENECA-2010SE42814

PATIENT
  Age: 17945 Day
  Sex: Female
  Weight: 89.4 kg

DRUGS (3)
  1. LISINOPRIL [Concomitant]
     Indication: HYPERTENSION
  2. NEXIUM [Suspect]
     Indication: GASTROOESOPHAGEAL REFLUX DISEASE
     Route: 048
     Dates: start: 20100501, end: 20100906
  3. ZOLOFT [Concomitant]
     Indication: ANXIETY

REACTIONS (3)
  - SOMNOLENCE [None]
  - FALL [None]
  - MOVEMENT DISORDER [None]
